FAERS Safety Report 4501967-3 (Version None)
Quarter: 2004Q4

REPORT INFORMATION
  Report Type: 
  Country: None (occurrence: None)
  Receive Date: 20041115
  Receipt Date: 20041115
  Transmission Date: 20050328
  Serious: Yes (Hospitalization)
  Sender: FDA-Public Use
  Company Number: None

PATIENT
  Age: 57 Year
  Sex: Male
  Weight: 112.5 kg

DRUGS (1)
  1. CORZIDE [Suspect]
     Indication: HYPERTENSION
     Dosage: 1TAB DAILY ORAL
     Route: 048
     Dates: start: 20041013, end: 20041014

REACTIONS (4)
  - CONVULSION [None]
  - HYPOTENSION [None]
  - ROAD TRAFFIC ACCIDENT [None]
  - SYNCOPE [None]
